FAERS Safety Report 21703471 (Version 4)
Quarter: 2024Q1

REPORT INFORMATION
  Report Type: Spontaneous
  Country: US (occurrence: US)
  Receive Date: 20221209
  Receipt Date: 20240207
  Transmission Date: 20240409
  Serious: Yes (Hospitalization)
  Sender: FDA-Public Use
  Company Number: US-GSK-US2022AMR182639

PATIENT
  Sex: Female

DRUGS (1)
  1. NUCALA [Suspect]
     Active Substance: MEPOLIZUMAB
     Indication: Asthma
     Dosage: UNK, ONCE A MONTH
     Route: 058

REACTIONS (3)
  - Hospitalisation [Recovered/Resolved]
  - Influenza [Recovered/Resolved]
  - Product storage error [Unknown]
